FAERS Safety Report 9621203 (Version 1)
Quarter: 2013Q4

REPORT INFORMATION
  Report Type: Spontaneous
  Country: US (occurrence: US)
  Receive Date: 20131015
  Receipt Date: 20131015
  Transmission Date: 20140711
  Serious: No
  Sender: FDA-Public Use
  Company Number: US-BAYER-2013-123048

PATIENT
  Age: 41 Year
  Sex: Female

DRUGS (3)
  1. MAGNEVIST [Suspect]
     Indication: NUCLEAR MAGNETIC RESONANCE IMAGING BRAIN
     Dosage: 14 ML, UNK
     Dates: start: 20131009, end: 20131009
  2. MAGNEVIST [Suspect]
     Indication: DIZZINESS
  3. MAGNEVIST [Suspect]
     Indication: VERTIGO

REACTIONS (4)
  - Rash [Unknown]
  - Pruritus [Unknown]
  - Flushing [Unknown]
  - Anxiety [Unknown]
